FAERS Safety Report 9045512 (Version 1)
Quarter: 2013Q1

REPORT INFORMATION
  Report Type: Report from Study
  Country: US (occurrence: US)
  Receive Date: 20130131
  Receipt Date: 20130131
  Transmission Date: 20140127
  Serious: No
  Sender: FDA-Public Use
  Company Number: US-ABBOTT-12P-163-1004911-00

PATIENT
  Age: 30 Year
  Sex: Male

DRUGS (4)
  1. HUMIRA [Suspect]
     Indication: CROHN^S DISEASE
     Dosage: LOADING DOSE
     Dates: start: 20121025
  2. FLONASE [Concomitant]
     Indication: HYPERSENSITIVITY
     Dosage: 2 SPRAYS
  3. IMODIUM [Concomitant]
     Indication: DIARRHOEA
     Dosage: OVER THE COUNTER, 2/DAY
  4. IBUPROFEN [Concomitant]
     Indication: BACK PAIN
     Dosage: OVER THE COUNTER

REACTIONS (1)
  - Respiratory tract infection [Recovering/Resolving]
